FAERS Safety Report 13332645 (Version 2)
Quarter: 2017Q1

REPORT INFORMATION
  Report Type: Spontaneous
  Country: US (occurrence: US)
  Receive Date: 20170314
  Receipt Date: 20170314
  Transmission Date: 20170428
  Serious: No
  Sender: FDA-Public Use
  Company Number: US-CIPLA LTD.-2016US17570

PATIENT

DRUGS (30)
  1. RANITIDINE. [Concomitant]
     Active Substance: RANITIDINE
     Dosage: 150 MG, UNK
     Route: 065
  2. COD LIVER OIL (VITAMIN A AND D) [Concomitant]
     Dosage: A=1250 IU
     Route: 065
  3. PROBIOTIC 10 [Concomitant]
     Dosage: 20 BILLION ACTIVE CULTURES
     Route: 065
  4. SERTRALINE [Suspect]
     Active Substance: SERTRALINE HYDROCHLORIDE
     Indication: DEPRESSION
     Dosage: 50 MG, QD
     Route: 048
  5. CLINDAMYCIN. [Concomitant]
     Active Substance: CLINDAMYCIN
     Route: 065
  6. MINIVELLE ESTRADIOL [Concomitant]
     Dosage: 1 MG, UNK
     Route: 065
  7. TAZORAC [Concomitant]
     Active Substance: TAZAROTENE
     Dosage: 0.05 MG, UNK
     Route: 065
  8. GLUCOSAMINE-CHONDROITIN-MSM [Concomitant]
     Dosage: UNK
     Route: 065
  9. COMPOUNDED TESTOSTERONE [Concomitant]
     Active Substance: TESTOSTERONE
     Dosage: 0.05 MG, QD
     Route: 065
  10. ZINC. [Concomitant]
     Active Substance: ZINC
     Dosage: 25 MG, UNK
     Route: 065
  11. COENZYME Q10 [Concomitant]
     Active Substance: UBIDECARENONE
     Dosage: 30 MG, WEEKLY
     Route: 065
  12. CHROMIUM PICOLINATE [Concomitant]
     Active Substance: CHROMIUM PICOLINATE
     Dosage: 500 ?G, UNK
     Route: 065
  13. SYNTHROID [Concomitant]
     Active Substance: LEVOTHYROXINE SODIUM
     Dosage: 100 ?G, UNK
     Route: 065
  14. VITAMIN D3 [Concomitant]
     Active Substance: CHOLECALCIFEROL
     Dosage: 1000 IU, UNK
     Route: 065
  15. BIOTIN [Concomitant]
     Active Substance: BIOTIN
     Dosage: 1000 ?G, UNK
     Route: 065
  16. ACZONE [Concomitant]
     Active Substance: DAPSONE
     Dosage: UNK
     Route: 065
  17. CALCIUM CITRATE [Concomitant]
     Active Substance: CALCIUM CITRATE
     Dosage: 400 MG, UNK
     Route: 065
  18. FOLIC ACID. [Concomitant]
     Active Substance: FOLIC ACID
     Dosage: 400 ?G, UNK
     Route: 065
  19. VITAMIN E [Concomitant]
     Active Substance: .ALPHA.-TOCOPHEROL
     Dosage: 400 IU, UNK
     Route: 065
  20. MAGNESIUM CITRATE. [Concomitant]
     Active Substance: MAGNESIUM CITRATE
     Dosage: 100 MG, UNK
     Route: 065
  21. CLOBETASOL [Concomitant]
     Active Substance: CLOBETASOL
     Route: 065
  22. PROGESTERONE. [Concomitant]
     Active Substance: PROGESTERONE
     Dosage: 200 MG, UNK
     Route: 065
  23. WOMEN^S MULTIVITAMIN AND MULTI MINERAL 50+ [Concomitant]
     Dosage: UNK
     Route: 065
  24. EVENING PRIMROSE OIL [Concomitant]
     Active Substance: EVENING PRIMROSE OIL
     Dosage: 1300 MG, BID
     Route: 065
  25. DMAE [Concomitant]
     Dosage: 100 MG, UNK
     Route: 065
  26. NIACIN. [Concomitant]
     Active Substance: NIACIN
     Dosage: 25 MG, BI WEEKLY
     Route: 065
  27. ACETAMINOPHEN ER [Concomitant]
     Active Substance: ACETAMINOPHEN
     Dosage: 650 MG, UNK
     Route: 065
  28. FLUTICASONE. [Concomitant]
     Active Substance: FLUTICASONE
     Dosage: UNK
     Route: 065
  29. FISH OIL 2000 MG OMEGA-3 [Concomitant]
     Dosage: UNK
     Route: 065
  30. VITAMIN C [Concomitant]
     Active Substance: ASCORBIC ACID
     Dosage: 1000 MG, UNK
     Route: 065

REACTIONS (3)
  - Gastrooesophageal reflux disease [Not Recovered/Not Resolved]
  - Disturbance in attention [Not Recovered/Not Resolved]
  - Insomnia [Not Recovered/Not Resolved]
